FAERS Safety Report 6389692-8 (Version None)
Quarter: 2009Q4

REPORT INFORMATION
  Report Type: 
  Country: None (occurrence: None)
  Receive Date: 20091002
  Receipt Date: 20091002
  Transmission Date: 20100525
  Serious: Yes (Life-Threatening)
  Sender: FDA-Public Use
  Company Number: None

PATIENT
  Age: 45 Year
  Sex: Female
  Weight: 50 kg

DRUGS (16)
  1. ETRAVIRINE 100 MG TIBOTEC [Suspect]
     Indication: END STAGE AIDS
     Dosage: 200 MG BID PO
     Route: 048
     Dates: start: 20090814, end: 20091001
  2. DARUNAVIR 600 MG ORTHO BIOTECH PRODUCTS [Suspect]
     Dosage: 600 MG BID PO
     Route: 048
     Dates: start: 20090814, end: 20091001
  3. BENZTROPINE MESYLATE [Concomitant]
  4. EMTRICITABINE [Concomitant]
  5. TENOFOVIR [Concomitant]
  6. DOCUSATE [Concomitant]
  7. RALTEGRAVIR [Concomitant]
  8. VALPROIC ACID [Concomitant]
  9. PSYLLIUM [Concomitant]
  10. FOLIC ACID [Concomitant]
  11. DONEZAPRIL [Concomitant]
  12. FLUCONAZOLE [Concomitant]
  13. ZOSYN [Concomitant]
  14. VANCOMYCIN [Concomitant]
  15. AZITHROMYCIN [Concomitant]
  16. MORPHINE [Concomitant]

REACTIONS (1)
  - SKIN EXFOLIATION [None]
